FAERS Safety Report 11351399 (Version 1)
Quarter: 2015Q3

REPORT INFORMATION
  Report Type: Spontaneous
  Country: US (occurrence: US)
  Receive Date: 20150807
  Receipt Date: 20150807
  Transmission Date: 20151125
  Serious: No
  Sender: FDA-Public Use
  Company Number: US-JNJFOC-20150112903

PATIENT
  Age: 66 Year
  Sex: Male
  Weight: 77.11 kg

DRUGS (10)
  1. ASPIRIN. [Concomitant]
     Active Substance: ASPIRIN
     Indication: ROUTINE HEALTH MAINTENANCE
     Route: 065
  2. MENS ROGAINE EXTRA STRENGTH [Suspect]
     Active Substance: MINOXIDIL
     Route: 061
  3. MENS ROGAINE EXTRA STRENGTH [Suspect]
     Active Substance: MINOXIDIL
     Indication: ALOPECIA
     Dosage: 2 DROPS ONTO SCALP
     Route: 061
     Dates: start: 20150107, end: 20150115
  4. VITAMIN E (TOCOPHERYL ACETATE) [Concomitant]
     Indication: ROUTINE HEALTH MAINTENANCE
     Dosage: FROM 10-12 YEARS
     Route: 065
  5. ALBUTEROL. [Concomitant]
     Active Substance: ALBUTEROL
     Route: 065
  6. L-ARGININE [Concomitant]
     Active Substance: ARGININE
     Indication: IMMUNE SYSTEM DISORDER
     Dosage: FROM 10-12 YEARS
     Route: 065
  7. VITAMIN A + D [Concomitant]
     Indication: ROUTINE HEALTH MAINTENANCE
     Dosage: FROM 10-12 YEARS
     Route: 065
  8. L-ARGININE [Concomitant]
     Active Substance: ARGININE
     Indication: CARDIAC DISORDER
     Dosage: FROM 10-12 YEARS
     Route: 065
  9. VITAMIN C [Concomitant]
     Active Substance: ASCORBIC ACID
     Indication: ROUTINE HEALTH MAINTENANCE
     Dosage: FROM 10-12 YEARS
     Route: 065
  10. MEN MULTIVITAMINS [Concomitant]
     Indication: ROUTINE HEALTH MAINTENANCE
     Dosage: FROM 10-12 YEARS
     Route: 065

REACTIONS (6)
  - Chest pain [Recovered/Resolved]
  - Insomnia [Recovered/Resolved]
  - Musculoskeletal pain [Recovered/Resolved]
  - Peripheral swelling [Recovered/Resolved]
  - Dizziness [Recovered/Resolved]
  - Heart rate increased [Recovered/Resolved]
